FAERS Safety Report 18238012 (Version 2)
Quarter: 2021Q4

REPORT INFORMATION
  Report Type: Report from Study
  Country: FR (occurrence: FR)
  Receive Date: 20200907
  Receipt Date: 20211001
  Transmission Date: 20220303
  Serious: Yes (Death)
  Sender: FDA-Public Use
  Company Number: FR-PFIZER INC-2020119440

PATIENT

DRUGS (5)
  1. METHOTREXATE [Suspect]
     Active Substance: METHOTREXATE
     Indication: Bladder cancer
     Dosage: 30 MG/M2, CYCLIC ( ON DAY 1: EVERY 2 WK FOR A TOTAL OF SIX CYCLES)
  2. DOXORUBICIN HYDROCHLORIDE [Suspect]
     Active Substance: DOXORUBICIN HYDROCHLORIDE
     Indication: Bladder cancer
     Dosage: 30 MG/M2, CYCLIC (DAY 2; EVERY 2 WK FOR A TOTAL OF SIX CYCLES)
  3. CISPLATIN [Suspect]
     Active Substance: CISPLATIN
     Indication: Bladder cancer
     Dosage: 70 MG/M2, CYCLIC (ON DAY 2: EVERY 2 WK FOR A TOTAL OF SIX CYCLES)
  4. VINBLASTINE [Suspect]
     Active Substance: VINBLASTINE
     Indication: Bladder cancer
     Dosage: 3 MG/M2, CYCLIC (ON DAY 2: EVERY 2 WK FOR A TOTAL OF SIX)
  5. GRANULOCYTE COLONY-STIMULATING FACTOR NOS [Concomitant]
     Active Substance: GRANULOCYTE COLONY-STIMULATING FACTOR NOS
     Indication: Bladder cancer
     Dosage: UNK, CYCLIC (DAY 3 TO 9, EVERY 2 WEEKS FOR A TOTAL OF SIX CYCLES )

REACTIONS (1)
  - Pulmonary embolism [Fatal]
